FAERS Safety Report 14503663 (Version 3)
Quarter: 2018Q1

REPORT INFORMATION
  Report Type: Spontaneous
  Country: FR (occurrence: FR)
  Receive Date: 20180208
  Receipt Date: 20180208
  Transmission Date: 20180509
  Serious: Yes (Hospitalization)
  Sender: FDA-Public Use
  Company Number: PHHY2018FR017718

PATIENT
  Age: 24 Year
  Sex: Male

DRUGS (3)
  1. AMOXICILLIN. [Suspect]
     Active Substance: AMOXICILLIN
     Indication: PHARYNGITIS
     Dosage: 2 G, UNK
     Route: 048
     Dates: start: 20171021, end: 20171024
  2. DAFALGAN [Concomitant]
     Active Substance: ACETAMINOPHEN
     Indication: PHARYNGITIS
     Dosage: UNK
     Route: 048
  3. PREDNISOLON [Suspect]
     Active Substance: PREDNISOLONE
     Indication: PHARYNGITIS
     Dosage: 3.5 DF (UG/LT), UNK
     Route: 048
     Dates: start: 20171021, end: 20171024

REACTIONS (3)
  - Rash maculo-papular [Recovering/Resolving]
  - Lip oedema [Recovered/Resolved]
  - Ear swelling [Recovered/Resolved]

NARRATIVE: CASE EVENT DATE: 20171024
